FAERS Safety Report 21316667 (Version 5)
Quarter: 2023Q4

REPORT INFORMATION
  Report Type: Spontaneous
  Country: US (occurrence: US)
  Receive Date: 20220911
  Receipt Date: 20231219
  Transmission Date: 20240110
  Serious: No
  Sender: FDA-Public Use
  Company Number: US-SA-SAC20220816001357

PATIENT
  Age: 30 Year
  Sex: Female

DRUGS (1)
  1. DUPIXENT [Suspect]
     Active Substance: DUPILUMAB
     Indication: Dermatitis atopic
     Dosage: 300 MG, QOW
     Route: 058
     Dates: start: 202206

REACTIONS (7)
  - Injection site irritation [Unknown]
  - Injection site eczema [Recovered/Resolved]
  - Condition aggravated [Recovered/Resolved]
  - Injection site rash [Unknown]
  - Eczema [Unknown]
  - Pruritus [Unknown]
  - Skin fissures [Unknown]

NARRATIVE: CASE EVENT DATE: 20220101
